FAERS Safety Report 4861949-9 (Version None)
Quarter: 2005Q4

REPORT INFORMATION
  Report Type: 
  Country: None (occurrence: None)
  Receive Date: 20051130
  Receipt Date: 20050729
  Transmission Date: 20060501
  Serious: Yes (Other)
  Sender: FDA-Public Use
  Company Number: PHEH2005US08346

PATIENT
  Age: 53 Year
  Sex: Male
  Weight: 84.8 kg

DRUGS (3)
  1. LAMISIL [Suspect]
     Indication: NAIL TINEA
     Dosage: 250 MG, QD, ORAL
     Route: 048
     Dates: start: 20050630, end: 20050720
  2. MOTRIN [Concomitant]
  3. BENADRYL [Concomitant]

REACTIONS (21)
  - CHEST DISCOMFORT [None]
  - CHROMATURIA [None]
  - DECREASED APPETITE [None]
  - DYSPNOEA [None]
  - EYE SWELLING [None]
  - FATIGUE [None]
  - FEELING HOT [None]
  - HEADACHE [None]
  - HEPATITIS [None]
  - HEPATOMEGALY [None]
  - INSOMNIA [None]
  - JAUNDICE [None]
  - LIVER FUNCTION TEST ABNORMAL [None]
  - MALAISE [None]
  - NIGHT SWEATS [None]
  - ONYCHOMADESIS [None]
  - PAIN IN EXTREMITY [None]
  - PRURITUS [None]
  - PYREXIA [None]
  - SKIN DISCOLOURATION [None]
  - STOMACH DISCOMFORT [None]
